FAERS Safety Report 4764611-6 (Version None)
Quarter: 2005Q3

REPORT INFORMATION
  Report Type: 
  Country: None (occurrence: None)
  Receive Date: 20050907
  Receipt Date: 20050603
  Transmission Date: 20060218
  Serious: Yes (Hospitalization)
  Sender: FDA-Public Use
  Company Number: 2005BH000065

PATIENT
  Sex: Female

DRUGS (1)
  1. PROMETHAZINE HYDROCHLORIDE [Suspect]
     Dosage: IV
     Route: 042
     Dates: start: 20050513, end: 20050517

REACTIONS (8)
  - DIFFICULTY IN WALKING [None]
  - DRUG HYPERSENSITIVITY [None]
  - GAIT DISTURBANCE [None]
  - MUSCLE TIGHTNESS [None]
  - PARKINSONISM [None]
  - RESTLESSNESS [None]
  - SOMNOLENCE [None]
  - TREMOR [None]
